FAERS Safety Report 10423676 (Version 1)
Quarter: 2014Q3

REPORT INFORMATION
  Report Type: Spontaneous
  Country: US (occurrence: None)
  Receive Date: 20140722
  Receipt Date: 20140722
  Transmission Date: 20150326
  Serious: No
  Sender: FDA-Public Use
  Company Number: AEGR00510

PATIENT
  Age: 64 Year
  Sex: Female

DRUGS (7)
  1. JUXTAPID [Suspect]
     Active Substance: LOMITAPIDE MESYLATE
     Indication: TYPE IIA HYPERLIPIDAEMIA
     Route: 048
     Dates: start: 201311, end: 201403
  2. FLUOXETINE [Concomitant]
     Active Substance: FLUOXETINE\FLUOXETINE HYDROCHLORIDE
  3. OMEGA 3 (FISH OIL) [Concomitant]
     Active Substance: OMEGA-3 FATTY ACIDS
  4. VITAMIN E [Concomitant]
     Active Substance: .ALPHA.-TOCOPHEROL
  5. WELCHOL (COLESEVELAM HYDROCHLORIDE) [Concomitant]
  6. SIMVASTATIN (SIMVASTATIN) [Concomitant]
     Active Substance: SIMVASTATIN
  7. LEVOTHYROXINE SODIUM (LEVOTHYROXINE SODIUM) [Concomitant]

REACTIONS (2)
  - Malaise [None]
  - Vomiting [None]

NARRATIVE: CASE EVENT DATE: 20140530
